FAERS Safety Report 5114973-5 (Version None)
Quarter: 2006Q3

REPORT INFORMATION
  Report Type: 
  Country: None (occurrence: None)
  Receive Date: 20060926
  Receipt Date: 20060915
  Transmission Date: 20061208
  Serious: Yes (Death, Disabling)
  Sender: FDA-Public Use
  Company Number: IN-MERCK-0609USA03749

PATIENT
  Age: 11 Year
  Sex: Male

DRUGS (1)
  1. CUPRIMINE [Suspect]
     Indication: HEPATO-LENTICULAR DEGENERATION
     Route: 048

REACTIONS (10)
  - CEREBRAL ATROPHY [None]
  - DRUG INEFFECTIVE [None]
  - FAECAL INCONTINENCE [None]
  - HEPATO-LENTICULAR DEGENERATION [None]
  - LEUKODYSTROPHY [None]
  - MITOCHONDRIAL ENCEPHALOMYOPATHY [None]
  - MUSCLE CONTRACTURE [None]
  - PYRAMIDAL TRACT SYNDROME [None]
  - RESPIRATORY TRACT INFECTION [None]
  - URINARY INCONTINENCE [None]
